FAERS Safety Report 9740368 (Version 1)
Quarter: 2013Q4

REPORT INFORMATION
  Report Type: Spontaneous
  Country: US (occurrence: US)
  Receive Date: 20131209
  Receipt Date: 20131209
  Transmission Date: 20140711
  Serious: Yes (Other)
  Sender: FDA-Public Use
  Company Number: US-BAYER-2013-149392

PATIENT
  Age: 71 Year
  Sex: Male

DRUGS (1)
  1. XOFIGO [Suspect]
     Indication: PROSTATE CANCER
     Dosage: UNK
     Dates: start: 20131024

REACTIONS (2)
  - Prostatic specific antigen increased [Not Recovered/Not Resolved]
  - Bone pain [Not Recovered/Not Resolved]
